FAERS Safety Report 9805171 (Version 3)
Quarter: 2015Q3

REPORT INFORMATION
  Report Type: Report from Study
  Country: US (occurrence: US)
  Receive Date: 20140109
  Receipt Date: 20150930
  Transmission Date: 20151125
  Serious: Yes (Hospitalization)
  Sender: FDA-Public Use
  Company Number: US-ROCHE-1330345

PATIENT
  Sex: Female

DRUGS (15)
  1. KEPPRA [Concomitant]
     Active Substance: LEVETIRACETAM
     Dosage: 1 1/2 TABS BID
     Route: 048
  2. EPIPEN [Concomitant]
     Active Substance: EPINEPHRINE
     Dosage: 1:1000 SOLUTION FOR INJECTION USE PRN
     Route: 065
  3. IPRATROPIUM BROMIDE. [Concomitant]
     Active Substance: IPRATROPIUM BROMIDE
     Dosage: 4-6 HRS PRN
     Route: 065
  4. LORAZEPAM. [Concomitant]
     Active Substance: LORAZEPAM
     Dosage: AS PER NEED
     Route: 048
  5. KEPPRA [Concomitant]
     Active Substance: LEVETIRACETAM
     Dosage: 750 MG TAB-2 TAB
     Route: 048
  6. FERROUS SULFATE [Concomitant]
     Active Substance: FERROUS SULFATE\FERROUS SULFATE, DRIED
     Route: 048
  7. DULERA [Concomitant]
     Active Substance: FORMOTEROL FUMARATE DIHYDRATE\MOMETASONE FUROATE
  8. XOLAIR [Suspect]
     Active Substance: OMALIZUMAB
     Indication: ASTHMA
     Route: 058
     Dates: start: 20131226
  9. ASMANEX [Concomitant]
     Active Substance: MOMETASONE FUROATE
     Dosage: PUFF
     Route: 065
  10. XOLAIR [Suspect]
     Active Substance: OMALIZUMAB
     Route: 058
  11. XOLAIR [Suspect]
     Active Substance: OMALIZUMAB
     Route: 058
  12. SYMBICORT [Concomitant]
     Active Substance: BUDESONIDE\FORMOTEROL FUMARATE DIHYDRATE
  13. XOLAIR [Suspect]
     Active Substance: OMALIZUMAB
     Route: 058
     Dates: start: 20131004
  14. VIMPAT [Concomitant]
     Active Substance: LACOSAMIDE
     Dosage: 1 TABLET BY MOUTH BID
     Route: 048
  15. ALBUTEROL. [Concomitant]
     Active Substance: ALBUTEROL
     Dosage: ACTUATION ORAL INHALER PRN
     Route: 048

REACTIONS (10)
  - Asthma [Unknown]
  - Seizure [Unknown]
  - Fatigue [Unknown]
  - Night sweats [Unknown]
  - Malaise [Recovered/Resolved]
  - Thyroid neoplasm [Not Recovered/Not Resolved]
  - Dyspnoea exertional [Recovered/Resolved]
  - Iron deficiency anaemia [Unknown]
  - Neck pain [Unknown]
  - Pyrexia [Unknown]
